FAERS Safety Report 7027721-9 (Version None)
Quarter: 2010Q4

REPORT INFORMATION
  Report Type: 
  Country: None (occurrence: None)
  Receive Date: 20101004
  Receipt Date: 20100927
  Transmission Date: 20110411
  Serious: Yes (Other)
  Sender: FDA-Public Use
  Company Number: US-AMGEN-KDL436276

PATIENT
  Sex: Male

DRUGS (1)
  1. ENBREL [Suspect]
     Indication: PSORIASIS
     Route: 058
     Dates: start: 20100518, end: 20100824

REACTIONS (2)
  - ALANINE AMINOTRANSFERASE ABNORMAL [None]
  - ASPARTATE AMINOTRANSFERASE ABNORMAL [None]
